FAERS Safety Report 8821104 (Version 2)
Quarter: 2012Q4

REPORT INFORMATION
  Report Type: Report from Study
  Country: IL (occurrence: IL)
  Receive Date: 20121002
  Receipt Date: 20121105
  Transmission Date: 20130627
  Serious: Yes (Hospitalization)
  Sender: FDA-Public Use
  Company Number: IL-GLAXOSMITHKLINE-B0791517B

PATIENT
  Age: 25 None
  Sex: Female
  Weight: 69 kg

DRUGS (6)
  1. RETIGABINE [Suspect]
     Indication: PARTIAL SEIZURES
     Dosage: 350MG Three times per day
     Route: 048
     Dates: start: 20071008
  2. VALPROIC ACID [Concomitant]
     Dosage: 1400MG Per day
  3. FOLIC ACID [Concomitant]
     Dosage: 5MG Per day
     Route: 048
     Dates: start: 20060127
  4. OXCARBAZEPINE [Concomitant]
     Dosage: 1200MG Per day
     Dates: start: 20070123
  5. NEURONTIN [Concomitant]
     Dosage: 600MG Per day
     Dates: start: 20060519
  6. NORGESTIMATE [Concomitant]
     Indication: CONTRACEPTION
     Dates: start: 20070629

REACTIONS (1)
  - Skin discolouration [Not Recovered/Not Resolved]
